FAERS Safety Report 20853832 (Version 2)
Quarter: 2022Q4

REPORT INFORMATION
  Report Type: Spontaneous
  Country: JP (occurrence: JP)
  Receive Date: 20220520
  Receipt Date: 20221124
  Transmission Date: 20230113
  Serious: Yes (Hospitalization, Other)
  Sender: FDA-Public Use
  Company Number: JP-GLAXOSMITHKLINE-JP2022JPN009257

PATIENT

DRUGS (10)
  1. INCRUSE ELLIPTA [Suspect]
     Active Substance: UMECLIDINIUM BROMIDE
     Indication: Asthma-chronic obstructive pulmonary disease overlap syndrome
     Dosage: 62.5 ?G
     Route: 055
     Dates: start: 20200226, end: 20211110
  2. TRELEGY ELLIPTA [Suspect]
     Active Substance: FLUTICASONE FUROATE\UMECLIDINIUM BROMIDE\VILANTEROL TRIFENATATE
     Indication: Asthma-chronic obstructive pulmonary disease overlap syndrome
     Dosage: 100 UG, QD
     Route: 055
     Dates: start: 20200226, end: 20211210
  3. RELVAR 100 ELLIPTA [Concomitant]
     Indication: Asthma-chronic obstructive pulmonary disease overlap syndrome
     Dosage: UNK
     Dates: start: 20211110
  4. HUMALOG PEN [Concomitant]
     Active Substance: INSULIN LISPRO
     Indication: Diabetes mellitus
     Dosage: 4 IU, TID
     Dates: start: 20200226
  5. LANTUS XR SOLOSTAR INJECTION [Concomitant]
     Indication: Diabetes mellitus
     Dosage: 32 IU, QD
     Dates: start: 20200226
  6. ACTOS [Concomitant]
     Active Substance: PIOGLITAZONE HYDROCHLORIDE
     Indication: Diabetes mellitus
     Dosage: 7.5 MG, QD
     Dates: start: 20200226
  7. GASTER [Concomitant]
     Active Substance: FAMOTIDINE
     Dosage: 20 MG, BID
  8. TRAZENTA TABLETS [Concomitant]
     Indication: Diabetes mellitus
     Dosage: 5 MG, QD
     Dates: start: 20200226
  9. GLICLAZIDE [Concomitant]
     Active Substance: GLICLAZIDE
     Indication: Diabetes mellitus
     Dosage: 20 MG, QD
     Dates: start: 20200226
  10. METFORMIN HYDROCHLORIDE [Concomitant]
     Active Substance: METFORMIN HYDROCHLORIDE
     Indication: Diabetes mellitus
     Dosage: 500 MG, BID
     Dates: start: 20200226

REACTIONS (6)
  - Flatulence [Recovering/Resolving]
  - Constipation [Unknown]
  - Fall [Unknown]
  - Contusion [Unknown]
  - Cholelithiasis [Unknown]
  - Cholecystitis [Unknown]

NARRATIVE: CASE EVENT DATE: 20211103
